FAERS Safety Report 9239310 (Version 1)
Quarter: 2013Q2

REPORT INFORMATION
  Report Type: Spontaneous
  Country: JP (occurrence: JP)
  Receive Date: 20130418
  Receipt Date: 20130418
  Transmission Date: 20140414
  Serious: Yes (Hospitalization)
  Sender: FDA-Public Use
  Company Number: JP-WATSON-2013-07057

PATIENT
  Age: 54 Year
  Sex: Male

DRUGS (12)
  1. AMIODARONE HYDROCHLORIDE (UNKNOWN) [Suspect]
     Indication: CARDIAC DISORDER
     Dosage: UNK
     Route: 042
  2. AMIODARONE HYDROCHLORIDE (UNKNOWN) [Suspect]
     Indication: VENTRICULAR TACHYCARDIA
  3. CARVEDILOL (UNKNOWN) [Suspect]
     Indication: VENTRICULAR TACHYCARDIA
     Dosage: 10 MG, DAILY
     Route: 048
  4. CARVEDILOL (UNKNOWN) [Suspect]
     Indication: CARDIAC DISORDER
  5. SOTALOL HYDROCHLORIDE [Suspect]
     Indication: VENTRICULAR TACHYCARDIA
     Dosage: 80 MG, DAILY
     Route: 048
  6. SOTALOL HYDROCHLORIDE [Suspect]
     Indication: CARDIAC DISORDER
     Dosage: 40 MG, DAILY
     Route: 048
  7. ACETYLSALICYLIC ACID [Concomitant]
     Indication: PRODUCT USED FOR UNKNOWN INDICATION
     Dosage: UNK
     Route: 065
  8. CLOPIDOGREL [Concomitant]
     Indication: PRODUCT USED FOR UNKNOWN INDICATION
     Dosage: UNK
     Route: 065
  9. CANDESARTAN [Concomitant]
     Indication: PRODUCT USED FOR UNKNOWN INDICATION
     Dosage: UNK
     Route: 065
  10. PITAVASTATIN CALCIUM [Concomitant]
     Indication: PRODUCT USED FOR UNKNOWN INDICATION
     Dosage: UNK
     Route: 065
  11. NIFEKALANT [Concomitant]
     Indication: VENTRICULAR TACHYCARDIA
     Dosage: UNK
     Route: 065
  12. LANDIOLOL [Concomitant]
     Indication: PRODUCT USED FOR UNKNOWN INDICATION
     Dosage: UNK
     Route: 065

REACTIONS (2)
  - Cardiac failure [Recovered/Resolved]
  - Bradycardia [Recovered/Resolved]
